FAERS Safety Report 4615382-5 (Version None)
Quarter: 2005Q1

REPORT INFORMATION
  Report Type: 
  Country: None (occurrence: None)
  Receive Date: 20050317
  Receipt Date: 20050304
  Transmission Date: 20050727
  Serious: Yes (Hospitalization)
  Sender: FDA-Public Use
  Company Number: 2005041544

PATIENT
  Age: 81 Year
  Sex: Female

DRUGS (8)
  1. ZOLOFT [Suspect]
     Indication: ILL-DEFINED DISORDER
     Dosage: 50 MG (DAILY), ORAL
     Route: 048
     Dates: start: 20040818
  2. ISOSORBIDE MONONITRATE [Suspect]
     Indication: ILL-DEFINED DISORDER
     Dosage: 40 MG (DAILY), ORAL
     Route: 048
  3. MOLSIDOMINE (MOLSIDOMINE) [Suspect]
     Indication: ILL-DEFINED DISORDER
     Dosage: 8 MG (DAILY), ORAL
     Route: 048
  4. FLUPENTIXOL DIHYDROCHLORIDE (FLUPENTIXOL DIHYDROCHLORIDE) [Suspect]
     Indication: ILL-DEFINED DISORDER
     Dosage: 6 MG (DAILY), ORAL
     Route: 048
     Dates: start: 20040830, end: 20040901
  5. OXAZEPAM [Suspect]
     Indication: ILL-DEFINED DISORDER
     Dosage: 15 MG (DAILY), ORAL
     Route: 048
     Dates: start: 20040729
  6. MIRTAZAPINE [Suspect]
     Indication: ILL-DEFINED DISORDER
     Dosage: 45 MG (DAILY), ORAL
     Route: 048
  7. PANTOPRAZOLE SODIUM [Concomitant]
  8. LEFAX/OLD FORM/(DIMETICONE, SILICON DIOXIDE, COLLOIDAL) [Concomitant]

REACTIONS (11)
  - DIZZINESS [None]
  - FALL [None]
  - HAEMATOMA [None]
  - HUMERUS FRACTURE [None]
  - JAW FRACTURE [None]
  - JOINT DISLOCATION [None]
  - LOSS OF CONSCIOUSNESS [None]
  - MOUTH INJURY [None]
  - SKIN LACERATION [None]
  - SYNCOPE [None]
  - TONGUE INJURY [None]
